FAERS Safety Report 9179775 (Version 1)
Quarter: 2012Q4

REPORT INFORMATION
  Report Type: 
  Country: US (occurrence: US)
  Receive Date: 20121029
  Receipt Date: 20121029
  Transmission Date: 20130627
  Serious: No
  Sender: FDA-Public Use
  Company Number: US-TEVA-366826USA

PATIENT
  Age: 72 None
  Sex: Female

DRUGS (5)
  1. TREANDA [Suspect]
     Indication: NON-HODGKIN^S LYMPHOMA STAGE II
     Dates: start: 20120904
  2. RITUXAN [Concomitant]
     Dates: start: 20120904
  3. SOLU MEDROL [Concomitant]
     Indication: PREMEDICATION
     Dates: start: 20121003
  4. TYLENOL [Concomitant]
     Indication: PREMEDICATION
     Dates: start: 20121003
  5. BENADRYL [Concomitant]
     Indication: PREMEDICATION
     Dates: start: 20121003

REACTIONS (3)
  - Infusion site erythema [Unknown]
  - Erythema [Unknown]
  - Pyrexia [Unknown]
